FAERS Safety Report 5451768-7 (Version None)
Quarter: 2007Q3

REPORT INFORMATION
  Report Type: 
  Country: None (occurrence: None)
  Receive Date: 20070913
  Receipt Date: 20070903
  Transmission Date: 20080115
  Serious: Yes (Hospitalization)
  Sender: FDA-Public Use
  Company Number: BR-MERCK-0709BRA00019

PATIENT
  Age: 3 Year
  Sex: Male
  Weight: 14 kg

DRUGS (1)
  1. SINGULAIR [Suspect]
     Indication: BRONCHITIS
     Route: 048
     Dates: start: 20070801, end: 20070902

REACTIONS (5)
  - ABDOMINAL PAIN [None]
  - HEPATOMEGALY [None]
  - PYREXIA [None]
  - SPLENOMEGALY [None]
  - VOMITING [None]
